FAERS Safety Report 9136431 (Version 1)
Quarter: 2013Q1

REPORT INFORMATION
  Report Type: Spontaneous
  Country: US (occurrence: US)
  Receive Date: 20130219
  Receipt Date: 20130219
  Transmission Date: 20140127
  Serious: No
  Sender: FDA-Public Use
  Company Number: US-BRISTOL-MYERS SQUIBB COMPANY-16836827

PATIENT
  Age: 41 Year
  Sex: Female
  Weight: 55.78 kg

DRUGS (1)
  1. ABATACEPT SUBQ INJECTION 125MG/ML [Suspect]
     Indication: RHEUMATOID ARTHRITIS
     Dosage: TOTAL:14 INJECTIONS?LAST INJECTION 01AUG2012.
     Route: 058

REACTIONS (2)
  - Injection site pain [Unknown]
  - Influenza like illness [Unknown]
